FAERS Safety Report 7732147-6 (Version None)
Quarter: 2011Q3

REPORT INFORMATION
  Report Type: 
  Country: None (occurrence: None)
  Receive Date: 20110906
  Receipt Date: 20110810
  Transmission Date: 20111222
  Serious: No
  Sender: FDA-Public Use
  Company Number: US-AMGEN-USASP2011040858

PATIENT
  Sex: Male

DRUGS (2)
  1. XGEVA [Suspect]
     Indication: METASTASES TO BONE
     Dosage: UNK
  2. ZYTIGA [Concomitant]

REACTIONS (3)
  - MUSCULOSKELETAL PAIN [None]
  - FALL [None]
  - PAIN IN EXTREMITY [None]
